FAERS Safety Report 11244404 (Version 1)
Quarter: 2015Q3

REPORT INFORMATION
  Report Type: Spontaneous
  Country: SE (occurrence: SE)
  Receive Date: 20150707
  Receipt Date: 20150707
  Transmission Date: 20151125
  Serious: Yes (Hospitalization)
  Sender: FDA-Public Use
  Company Number: SE-TEVA-574496ISR

PATIENT
  Age: 70 Year
  Sex: Female

DRUGS (2)
  1. DICLOFENAC T RATIOPHARM 50 MG FILMDRAGERAD TABLETT [Suspect]
     Active Substance: DICLOFENAC
     Indication: ARTHRALGIA
     Route: 048
     Dates: start: 200208
  2. CANDESARTAN ORION [Suspect]
     Active Substance: CANDESARTAN

REACTIONS (10)
  - Vomiting [Recovered/Resolved]
  - Diarrhoea [Recovered/Resolved]
  - Hypertension [Recovered/Resolved with Sequelae]
  - Gastric ulcer [Recovered/Resolved]
  - Nail growth abnormal [Recovered/Resolved]
  - Product substitution issue [Recovered/Resolved]
  - Abdominal pain [Recovered/Resolved]
  - Onychoclasis [Recovered/Resolved]
  - Alopecia [Recovered/Resolved]
  - Nausea [Recovered/Resolved]

NARRATIVE: CASE EVENT DATE: 200208
